FAERS Safety Report 19744568 (Version 1)
Quarter: 2021Q3

REPORT INFORMATION
  Report Type: Spontaneous
  Country: US (occurrence: US)
  Receive Date: 20210823
  Receipt Date: 20210823
  Transmission Date: 20211014
  Serious: Yes (Hospitalization)
  Sender: FDA-Public Use
  Company Number: None

PATIENT
  Age: 63 Year
  Sex: Female

DRUGS (6)
  1. HUMIRA [Suspect]
     Active Substance: ADALIMUMAB
     Indication: COLITIS ULCERATIVE
     Dosage: ?          OTHER FREQUENCY:1 PEN Q OTHER WEEK;?
     Route: 058
     Dates: start: 20210708
  2. PREDNISONE. [Concomitant]
     Active Substance: PREDNISONE
  3. MESALAMINE. [Concomitant]
     Active Substance: MESALAMINE
  4. LOSARTAN POT [Concomitant]
     Active Substance: LOSARTAN POTASSIUM
  5. JANUVIA [Concomitant]
     Active Substance: SITAGLIPTIN PHOSPHATE
  6. METFORMIN [Concomitant]
     Active Substance: METFORMIN HYDROCHLORIDE

REACTIONS (2)
  - Thrombosis [None]
  - Abdominal pain upper [None]

NARRATIVE: CASE EVENT DATE: 20210818
